FAERS Safety Report 10780122 (Version 1)
Quarter: 2015Q1

REPORT INFORMATION
  Report Type: Spontaneous
  Country: US (occurrence: None)
  Receive Date: 20150209
  Receipt Date: 20150209
  Transmission Date: 20150721
  Serious: No
  Sender: FDA-Public Use
  Company Number: None

PATIENT
  Age: 50 Year
  Sex: Female
  Weight: 85 kg

DRUGS (1)
  1. TACROLIUMS 0.5 MG DR. REDDY^S [Suspect]
     Active Substance: TACROLIMUS
     Indication: IMMUNOSUPPRESSANT DRUG THERAPY
     Dosage: 1 PILL BID PO
     Route: 048
     Dates: start: 20150129, end: 20150203

REACTIONS (7)
  - Product quality issue [None]
  - Renal impairment [None]
  - Vomiting [None]
  - Diarrhoea [None]
  - Nausea [None]
  - Product substitution issue [None]
  - Toxicity to various agents [None]

NARRATIVE: CASE EVENT DATE: 20150201
